FAERS Safety Report 10090221 (Version 3)
Quarter: 2014Q2

REPORT INFORMATION
  Report Type: Spontaneous
  Country: US (occurrence: US)
  Receive Date: 20140421
  Receipt Date: 20140501
  Transmission Date: 20141212
  Serious: Yes (Life-Threatening, Hospitalization)
  Sender: FDA-Public Use
  Company Number: US-JNJFOC-20140413840

PATIENT
  Age: 77 Year
  Sex: Male
  Weight: 87 kg

DRUGS (16)
  1. XARELTO [Suspect]
     Indication: CEREBROVASCULAR ACCIDENT PROPHYLAXIS
     Route: 048
     Dates: end: 20140122
  2. XARELTO [Suspect]
     Indication: ATRIAL FIBRILLATION
     Route: 048
     Dates: end: 20140122
  3. XARELTO [Suspect]
     Indication: PULMONARY EMBOLISM
     Route: 048
     Dates: end: 20140122
  4. XARELTO [Suspect]
     Indication: DEEP VEIN THROMBOSIS
     Route: 048
     Dates: end: 20140122
  5. XARELTO [Suspect]
     Indication: SHOULDER OPERATION
     Route: 048
     Dates: end: 20140122
  6. SIMVASTATIN [Concomitant]
     Route: 065
  7. ACYCLOVIR [Concomitant]
     Dosage: AT BED TIME
     Route: 065
  8. FLEXERIL [Concomitant]
     Dosage: AS NECESSARY
     Route: 065
  9. COLACE [Concomitant]
     Route: 065
  10. NEURONTIN [Concomitant]
     Route: 065
  11. IMDUR [Concomitant]
     Route: 065
  12. LISINOPRIL [Concomitant]
     Route: 065
  13. METOPROLOL [Concomitant]
     Route: 065
  14. NITROGLYCERIN [Concomitant]
     Dosage: AS NECESSARY
     Route: 065
  15. HYDROCODONE [Concomitant]
     Dosage: AS NECESSARY
     Route: 065
  16. PANTOPRAZOLE [Concomitant]
     Dosage: AS NECESSARY
     Route: 065

REACTIONS (4)
  - Gastrointestinal haemorrhage [Recovered/Resolved]
  - Duodenal stenosis [Unknown]
  - Haemoglobin decreased [Recovered/Resolved]
  - Hypotension [Recovering/Resolving]
